FAERS Safety Report 7503867-3 (Version None)
Quarter: 2011Q2

REPORT INFORMATION
  Report Type: 
  Country: None (occurrence: None)
  Receive Date: 20110401
  Receipt Date: 20100419
  Transmission Date: 20111010
  Serious: Yes (Other)
  Sender: FDA-Public Use
  Company Number: 231847USA

PATIENT
  Sex: Female

DRUGS (2)
  1. TAMOXIFEN CITRATE [Suspect]
  2. HYDROCHLOROTHAIZIDE [Concomitant]

REACTIONS (2)
  - THROMBOSIS [None]
  - CEREBROVASCULAR ACCIDENT [None]
